FAERS Safety Report 11037435 (Version 1)
Quarter: 2015Q2

REPORT INFORMATION
  Report Type: Spontaneous
  Country: AR (occurrence: None)
  Receive Date: 20150414
  Receipt Date: 20150414
  Transmission Date: 20150821
  Serious: Yes (Hospitalization)
  Sender: FDA-Public Use
  Company Number: FK201501701

PATIENT
  Age: 30 Year
  Sex: Male

DRUGS (2)
  1. CAFFEINE 25% (CAFFEINE) [Concomitant]
  2. PROPOFOL 1% MCT FRESENIUS (PROPOFOL) (PROPOFOL) [Suspect]
     Active Substance: PROPOFOL
     Indication: ENDOSCOPY UPPER GASTROINTESTINAL TRACT
     Route: 040
     Dates: start: 20150310, end: 20150310

REACTIONS (6)
  - Hypothermia [None]
  - Pyrexia [None]
  - Vomiting [None]
  - Headache [None]
  - Nausea [None]
  - Pain [None]

NARRATIVE: CASE EVENT DATE: 20150310
